FAERS Safety Report 9478159 (Version 1)
Quarter: 2013Q3

REPORT INFORMATION
  Report Type: Spontaneous
  Country: US (occurrence: None)
  Receive Date: 20130815
  Receipt Date: 20130815
  Transmission Date: 20140515
  Serious: Yes (Hospitalization)
  Sender: FDA-Public Use
  Company Number: US-145464

PATIENT
  Age: 24 Year
  Sex: Male
  Weight: 98 kg

DRUGS (1)
  1. BOTULISM ANTITOXIN [Suspect]
     Indication: BOTULISM
     Dosage: (11 ML TOTAL  INTRAVENOUS (NOT OTHERWISE SPECIFIED)
     Route: 042
     Dates: start: 20130424, end: 20130424

REACTIONS (2)
  - Pneumonia [None]
  - Tracheostomy [None]
